FAERS Safety Report 8199262-7 (Version None)
Quarter: 2012Q1

REPORT INFORMATION
  Report Type: 
  Country: None (occurrence: None)
  Receive Date: 20120309
  Receipt Date: 20120305
  Transmission Date: 20120608
  Serious: No
  Sender: FDA-Public Use
  Company Number: US-B.I. PHARMACEUTICALS,INC./RIDGEFIELD-2012-BP-04391BP

PATIENT
  Sex: Male

DRUGS (1)
  1. TRADJENTA [Suspect]
     Dosage: 5 MG
     Dates: start: 20120305, end: 20120305

REACTIONS (4)
  - HEADACHE [None]
  - RASH [None]
  - TACHYCARDIA [None]
  - ANXIETY [None]
